FAERS Safety Report 21538169 (Version 1)
Quarter: 2022Q4

REPORT INFORMATION
  Report Type: Spontaneous
  Country: ES (occurrence: ES)
  Receive Date: 20221101
  Receipt Date: 20221101
  Transmission Date: 20230113
  Serious: Yes (Other)
  Sender: FDA-Public Use
  Company Number: ES-AMGEN-ESPSP2022184037

PATIENT
  Age: 44 Year
  Sex: Female

DRUGS (3)
  1. PROLIA [Suspect]
     Active Substance: DENOSUMAB
     Indication: Osteoporosis
     Dosage: UNK
     Route: 065
  2. PROLIA [Suspect]
     Active Substance: DENOSUMAB
     Indication: Osteopenia
  3. 25-HYDROXYCHOLECALCIFEROL [Concomitant]
     Indication: Product used for unknown indication
     Dosage: 1000 INTERNATIONAL UNIT/ 24 HOURS
     Route: 065

REACTIONS (5)
  - Renal impairment [Unknown]
  - Hypophosphataemia [Unknown]
  - Bone density decreased [Unknown]
  - Urinary tract infection [Unknown]
  - Upper respiratory tract infection [Unknown]
